FAERS Safety Report 13448014 (Version 1)
Quarter: 2017Q2

REPORT INFORMATION
  Report Type: Spontaneous
  Country: US (occurrence: US)
  Receive Date: 20170417
  Receipt Date: 20170417
  Transmission Date: 20170830
  Serious: Yes (Hospitalization)
  Sender: FDA-Public Use
  Company Number: None

PATIENT
  Age: 43 Year
  Sex: Female
  Weight: 63.56 kg

DRUGS (15)
  1. OYST-CAL/D [Concomitant]
  2. OXAZEPAM. [Concomitant]
     Active Substance: OXAZEPAM
  3. DOCUSATE [Concomitant]
     Active Substance: DOCUSATE
  4. LITHIUM CARBONATE. [Concomitant]
     Active Substance: LITHIUM CARBONATE
  5. NIACINAMIDE WITH VITAMIN C [Concomitant]
  6. MIRALAX [Suspect]
     Active Substance: POLYETHYLENE GLYCOL 3350
     Indication: CONSTIPATION
     Route: 048
     Dates: start: 20150215, end: 20150325
  7. SENEKOT [Concomitant]
  8. FISH OIL [Concomitant]
     Active Substance: FISH OIL
  9. DIVALPROEX [Concomitant]
     Active Substance: DIVALPROEX SODIUM
  10. PFEIFFER PRIMER MULTIVITAMIN [Suspect]
     Active Substance: VITAMINS
  11. CLOZARIL [Concomitant]
     Active Substance: CLOZAPINE
  12. VITAMIN B12 [Concomitant]
     Active Substance: CYANOCOBALAMIN
  13. PYRIDOXOL PHOSPHATE [Concomitant]
  14. EUCERIN [Concomitant]
     Active Substance: ENSULIZOLE\EUCERIN\OCTINOXATE\OCTISALATE\TITANIUM DIOXIDE\ZINC OXIDE
  15. OLANZAPINE. [Concomitant]
     Active Substance: OLANZAPINE

REACTIONS (4)
  - Syncope [None]
  - Abnormal behaviour [None]
  - Seizure [None]
  - Dehydration [None]

NARRATIVE: CASE EVENT DATE: 20150322
